FAERS Safety Report 6902110-3 (Version None)
Quarter: 2010Q3

REPORT INFORMATION
  Report Type: 
  Country: None (occurrence: None)
  Receive Date: 20100803
  Receipt Date: 20080416
  Transmission Date: 20110219
  Serious: No
  Sender: FDA-Public Use
  Company Number: US-PFIZER INC-2008035157

PATIENT
  Sex: Female

DRUGS (2)
  1. LYRICA [Suspect]
     Indication: FIBROMYALGIA
     Dates: start: 20080414, end: 20080415
  2. CONTRACEPTIVE, UNSPECIFIED [Concomitant]

REACTIONS (4)
  - DRUG HYPERSENSITIVITY [None]
  - PRESYNCOPE [None]
  - VISION BLURRED [None]
  - VISUAL IMPAIRMENT [None]
